FAERS Safety Report 7324531-X (Version None)
Quarter: 2011Q1

REPORT INFORMATION
  Report Type: 
  Country: None (occurrence: None)
  Receive Date: 20110203
  Receipt Date: 20101027
  Transmission Date: 20110831
  Serious: Yes (Hospitalization)
  Sender: FDA-Public Use
  Company Number: 021353

PATIENT
  Age: 61 Year
  Sex: Male

DRUGS (1)
  1. LEVETIRACETAM [Suspect]

REACTIONS (1)
  - COMPLEX PARTIAL SEIZURES [None]
